FAERS Safety Report 14199592 (Version 1)
Quarter: 2017Q4

REPORT INFORMATION
  Report Type: Spontaneous
  Country: US (occurrence: None)
  Receive Date: 20171116
  Receipt Date: 20171116
  Transmission Date: 20180321
  Serious: Yes (Life-Threatening, Hospitalization)
  Sender: FDA-Public Use
  Company Number: None

PATIENT
  Age: 68 Year
  Sex: Male
  Weight: 96.16 kg

DRUGS (1)
  1. LISINOPRIL. [Suspect]
     Active Substance: LISINOPRIL
     Indication: HYPERTENSION
     Route: 048
     Dates: start: 20091103, end: 20171107

REACTIONS (7)
  - Bronchospasm [None]
  - Odynophagia [None]
  - Nasal congestion [None]
  - Rhinorrhoea [None]
  - Angioedema [None]
  - Oropharyngeal pain [None]
  - Lip swelling [None]

NARRATIVE: CASE EVENT DATE: 20171107
